FAERS Safety Report 23243774 (Version 1)
Quarter: 2023Q4

REPORT INFORMATION
  Report Type: Spontaneous
  Country: US (occurrence: US)
  Receive Date: 20231130
  Receipt Date: 20231130
  Transmission Date: 20240110
  Serious: No
  Sender: FDA-Public Use
  Company Number: US-CHIESI-2023CHF02022

PATIENT
  Sex: Male

DRUGS (1)
  1. REVCOVI [Suspect]
     Active Substance: ELAPEGADEMASE-LVLR
     Indication: Combined immunodeficiency
     Dosage: 4.5 ML (2.4 MG/1.5 ML), MON, WED, + FRI (3 X PER WEEK)
     Route: 065
     Dates: start: 20210728

REACTIONS (1)
  - Scrotal swelling [Not Recovered/Not Resolved]
